FAERS Safety Report 7978689-X (Version None)
Quarter: 2011Q4

REPORT INFORMATION
  Report Type: 
  Country: None (occurrence: None)
  Receive Date: 20111214
  Receipt Date: 20111208
  Transmission Date: 20120403
  Serious: Yes (Hospitalization)
  Sender: FDA-Public Use
  Company Number: US-SANOFI-AVENTIS-2011SA080614

PATIENT
  Age: 50 Year
  Sex: Male

DRUGS (7)
  1. MORPHINE [Concomitant]
  2. PROTONIX [Concomitant]
     Indication: STRESS ULCER
  3. ASPIRIN [Concomitant]
  4. MULTAQ [Suspect]
     Indication: ATRIAL FIBRILLATION
     Route: 048
     Dates: start: 20110101
  5. XOPENEX [Concomitant]
  6. LOVENOX [Concomitant]
  7. ATIVAN [Concomitant]

REACTIONS (2)
  - RESPIRATORY DISORDER [None]
  - PNEUMONIA [None]
